FAERS Safety Report 23489724 (Version 2)
Quarter: 2024Q4

REPORT INFORMATION
  Report Type: Report from Study
  Country: US (occurrence: US)
  Receive Date: 20240206
  Receipt Date: 20241018
  Transmission Date: 20250115
  Serious: No
  Sender: ROCHE
  Company Number: US-ROCHE-3337955

PATIENT
  Age: 76 Year
  Sex: Female

DRUGS (19)
  1. XOLAIR [Suspect]
     Active Substance: OMALIZUMAB
     Indication: Idiopathic urticaria
     Dosage: STRENGTH: 150MG/ML
     Route: 058
     Dates: start: 202304
  2. XOLAIR [Suspect]
     Active Substance: OMALIZUMAB
     Route: 058
  3. XOLAIR [Suspect]
     Active Substance: OMALIZUMAB
     Route: 058
  4. BACITRACIN [Concomitant]
     Active Substance: BACITRACIN
  5. CALCIUM\CHOLECALCIFEROL [Concomitant]
     Active Substance: CALCIUM\CHOLECALCIFEROL
  6. CARVEDILOL [Concomitant]
     Active Substance: CARVEDILOL
  7. CETIRIZINE HYDROCHLORIDE [Concomitant]
     Active Substance: CETIRIZINE HYDROCHLORIDE
  8. CHLORASEPTIC SORE THROAT [Concomitant]
     Active Substance: PHENOL
  9. EPINEPHRINE [Concomitant]
     Active Substance: EPINEPHRINE
  10. EPIPEN [Concomitant]
     Active Substance: EPINEPHRINE
  11. EVISTA [Concomitant]
     Active Substance: RALOXIFENE HYDROCHLORIDE
  12. FLONASE [Concomitant]
     Active Substance: FLUTICASONE PROPIONATE
  13. CHONDROITIN SULFATE (BOVINE)\GLUCOSAMINE HYDROCHLORIDE [Concomitant]
     Active Substance: CHONDROITIN SULFATE (BOVINE)\GLUCOSAMINE HYDROCHLORIDE
  14. LUTEIN [Concomitant]
     Active Substance: LUTEIN
  15. SODIUM CHLORIDE [Concomitant]
     Active Substance: SODIUM CHLORIDE
  16. SYSTANE HYDRATION PF PRESERVATIVE FREE [Concomitant]
     Active Substance: POLYETHYLENE GLYCOL 400\PROPYLENE GLYCOL
  17. THERATEARS [Concomitant]
     Active Substance: CARBOXYMETHYLCELLULOSE SODIUM
  18. ACETAMINOPHEN [Concomitant]
     Active Substance: ACETAMINOPHEN
  19. ZADITOR [Concomitant]
     Active Substance: KETOTIFEN FUMARATE

REACTIONS (2)
  - Off label use [Unknown]
  - No adverse event [Unknown]

NARRATIVE: CASE EVENT DATE: 20230424
